FAERS Safety Report 17196279 (Version 1)
Quarter: 2019Q4

REPORT INFORMATION
  Report Type: Spontaneous
  Country: JP (occurrence: JP)
  Receive Date: 20191224
  Receipt Date: 20191224
  Transmission Date: 20200122
  Serious: Yes (Death, Other)
  Sender: FDA-Public Use
  Company Number: JP-009507513-1911JPN002036J

PATIENT
  Age: 99 Year

DRUGS (2)
  1. CUBICIN [Suspect]
     Active Substance: DAPTOMYCIN
     Indication: ENDOCARDITIS
     Dosage: 8 MILLIGRAM/KILOGRAM, QD
     Route: 041
     Dates: start: 201910, end: 2019
  2. CUBICIN [Suspect]
     Active Substance: DAPTOMYCIN
     Indication: STAPHYLOCOCCAL BACTERAEMIA
     Dosage: 8 MILLIGRAM/KILOGRAM
     Route: 041
     Dates: start: 201911

REACTIONS (4)
  - Overdose [Unknown]
  - Pneumonia aspiration [Fatal]
  - Blood creatine phosphokinase increased [Recovering/Resolving]
  - Staphylococcal bacteraemia [Unknown]

NARRATIVE: CASE EVENT DATE: 201910
